FAERS Safety Report 16675682 (Version 2)
Quarter: 2019Q3

REPORT INFORMATION
  Report Type: Report from Study
  Country: BR (occurrence: BR)
  Receive Date: 20190806
  Receipt Date: 20190809
  Transmission Date: 20191004
  Serious: Yes (Death, Hospitalization)
  Sender: FDA-Public Use
  Company Number: PHHY2019BR181600

PATIENT
  Sex: Male

DRUGS (2)
  1. VOTRIENT [Suspect]
     Active Substance: PAZOPANIB HYDROCHLORIDE
     Indication: PRODUCT USED FOR UNKNOWN INDICATION
     Dosage: UNK
     Route: 065
     Dates: start: 201903
  2. XARELTO [Concomitant]
     Active Substance: RIVAROXABAN
     Indication: SWELLING
     Route: 065

REACTIONS (8)
  - Gait disturbance [Unknown]
  - Pleural effusion [Unknown]
  - Swelling [Unknown]
  - Fatigue [Unknown]
  - Abdominal distension [Unknown]
  - Disease progression [Fatal]
  - Peripheral swelling [Unknown]
  - Therapy non-responder [Unknown]
